FAERS Safety Report 9720438 (Version 3)
Quarter: 2013Q4

REPORT INFORMATION
  Report Type: Spontaneous
  Country: AU (occurrence: AU)
  Receive Date: 20131129
  Receipt Date: 20131231
  Transmission Date: 20140711
  Serious: Yes (Hospitalization)
  Sender: FDA-Public Use
  Company Number: AU-ASTRAZENECA-2013SE80145

PATIENT
  Age: 56 Year
  Sex: Female
  Weight: 53 kg

DRUGS (21)
  1. SEROQUEL [Suspect]
     Indication: BIPOLAR DISORDER
     Route: 048
  2. SEROQUEL [Suspect]
     Indication: DEPRESSION
     Route: 048
  3. SEROQUEL [Suspect]
     Indication: ANXIETY
     Route: 048
  4. SEROQUEL [Suspect]
     Indication: BIPOLAR DISORDER
     Route: 048
  5. SEROQUEL [Suspect]
     Indication: DEPRESSION
     Route: 048
  6. SEROQUEL [Suspect]
     Indication: ANXIETY
     Route: 048
  7. SEROQUEL [Suspect]
     Indication: BIPOLAR DISORDER
     Dosage: 150 MG TWICE DAILY AS REQUIRED.
     Route: 048
  8. SEROQUEL [Suspect]
     Indication: DEPRESSION
     Dosage: 150 MG TWICE DAILY AS REQUIRED.
     Route: 048
  9. SEROQUEL [Suspect]
     Indication: ANXIETY
     Dosage: 150 MG TWICE DAILY AS REQUIRED.
     Route: 048
  10. SEROQUEL [Suspect]
     Indication: BIPOLAR DISORDER
     Dosage: 100 MG, MANE, 50 MG AT 14H00, 300 MG AT 20H00
     Route: 048
     Dates: start: 201210, end: 201311
  11. SEROQUEL [Suspect]
     Indication: DEPRESSION
     Dosage: 100 MG, MANE, 50 MG AT 14H00, 300 MG AT 20H00
     Route: 048
     Dates: start: 201210, end: 201311
  12. SEROQUEL [Suspect]
     Indication: ANXIETY
     Dosage: 100 MG, MANE, 50 MG AT 14H00, 300 MG AT 20H00
     Route: 048
     Dates: start: 201210, end: 201311
  13. SEROQUEL [Suspect]
     Indication: BIPOLAR DISORDER
     Route: 048
     Dates: start: 20131104
  14. SEROQUEL [Suspect]
     Indication: DEPRESSION
     Route: 048
     Dates: start: 20131104
  15. SEROQUEL [Suspect]
     Indication: ANXIETY
     Route: 048
     Dates: start: 20131104
  16. NEULACTIL [Concomitant]
     Indication: AGITATION
     Route: 048
     Dates: start: 201211
  17. VALIUM [Concomitant]
     Indication: ANXIETY
     Dosage: 5 MG TWICE A DAY/10 MG AT NIGHT
     Route: 048
     Dates: start: 201211
  18. IMOVANE [Concomitant]
     Indication: INSOMNIA
     Route: 048
     Dates: start: 20131104
  19. PLAQUENIL [Concomitant]
     Route: 048
     Dates: start: 201211
  20. AVANZA [Concomitant]
     Indication: ANXIETY
     Route: 048
     Dates: start: 201211
  21. CYMBALTA [Concomitant]
     Route: 048
     Dates: start: 201211

REACTIONS (3)
  - Insomnia [Recovered/Resolved]
  - Orthostatic hypotension [Not Recovered/Not Resolved]
  - Off label use [Unknown]
